FAERS Safety Report 9723120 (Version 1)
Quarter: 2013Q4

REPORT INFORMATION
  Report Type: Spontaneous
  Country: CZ (occurrence: None)
  Receive Date: 20131126
  Receipt Date: 20131126
  Transmission Date: 20140711
  Serious: Yes (Other)
  Sender: FDA-Public Use
  Company Number: FK201305048

PATIENT
  Age: 65 Year
  Sex: Female

DRUGS (3)
  1. PROPOFOL 1% MCT FRESENIUS (PROPOFOL) (PROPOFOL) [Suspect]
     Indication: ANAESTHESIA
     Dosage: 10 MG, 1 IN 1 D, PARENTERAL
     Route: 051
     Dates: start: 20131012, end: 20131012
  2. RAPIFEN (ALFENTANILI HYDROCHLORIDUM) (ALFENTANILI HYDROCHLORIDUM) [Suspect]
     Indication: ANALGESIC THERAPY
     Dosage: 0.5 MG, 1 IN 1 D, PARENTERAL
     Route: 051
  3. ATROPIN BIOTIKA (ATROPINE) [Concomitant]

REACTIONS (3)
  - Pyrexia [None]
  - Fatigue [None]
  - Myalgia [None]
